FAERS Safety Report 7236711-2 (Version None)
Quarter: 2011Q1

REPORT INFORMATION
  Report Type: 
  Country: None (occurrence: None)
  Receive Date: 20110120
  Receipt Date: 20110114
  Transmission Date: 20110831
  Serious: Yes (Hospitalization)
  Sender: FDA-Public Use
  Company Number: US-AMGEN-QUU385303

PATIENT

DRUGS (4)
  1. PREVACID [Concomitant]
     Dosage: UNK
     Dates: start: 20070101
  2. CELEBREX [Concomitant]
  3. ENBREL [Suspect]
     Indication: ANKYLOSING SPONDYLITIS
     Dosage: 50 MG, QWK
     Route: 058
     Dates: start: 20020401
  4. ACTONEL [Concomitant]
     Dosage: UNK
     Dates: start: 20070101

REACTIONS (1)
  - PROSTATE CANCER [None]
